FAERS Safety Report 11660073 (Version 1)
Quarter: 2015Q4

REPORT INFORMATION
  Report Type: Spontaneous
  Country: US (occurrence: None)
  Receive Date: 20151023
  Receipt Date: 20151023
  Transmission Date: 20160304
  Serious: Yes (Disabling)
  Sender: FDA-Public Use
  Company Number: None

PATIENT
  Age: 5 Year
  Sex: Female
  Weight: 21.32 kg

DRUGS (2)
  1. MULTIVITAMIN [Suspect]
     Active Substance: VITAMINS
  2. MIRALAX [Suspect]
     Active Substance: POLYETHYLENE GLYCOL 3350
     Indication: CONSTIPATION
     Route: 048
     Dates: start: 20150919, end: 20151001

REACTIONS (9)
  - Affect lability [None]
  - Dark circles under eyes [None]
  - Abnormal behaviour [None]
  - Tic [None]
  - Drug prescribing error [None]
  - Homicidal ideation [None]
  - Suicidal ideation [None]
  - Mood altered [None]
  - Insomnia [None]

NARRATIVE: CASE EVENT DATE: 20150919
